FAERS Safety Report 17064447 (Version 4)
Quarter: 2020Q2

REPORT INFORMATION
  Report Type: Spontaneous
  Country: US (occurrence: US)
  Receive Date: 20191122
  Receipt Date: 20200619
  Transmission Date: 20200713
  Serious: Yes (Other)
  Sender: FDA-Public Use
  Company Number: US-PFIZER INC-2019501261

PATIENT
  Age: 83 Year
  Sex: Female

DRUGS (2)
  1. XELJANZ [Suspect]
     Active Substance: TOFACITINIB CITRATE
     Dosage: 5 MG, DAILY(TAKE 1 TABLET BY MOUTH ONCE DAILY)
     Route: 048
  2. XELJANZ [Suspect]
     Active Substance: TOFACITINIB CITRATE
     Indication: RHEUMATOID ARTHRITIS
     Dosage: 5 MG, 1X/DAY
     Dates: start: 20190909

REACTIONS (14)
  - Peripheral swelling [Unknown]
  - Faeces discoloured [Unknown]
  - Constipation [Unknown]
  - Diarrhoea [Unknown]
  - Therapeutic response unexpected [Unknown]
  - Gout [Unknown]
  - Atrial fibrillation [Unknown]
  - Gastric disorder [Unknown]
  - Fluid retention [Unknown]
  - Vertigo [Unknown]
  - Malaise [Unknown]
  - Anosmia [Unknown]
  - Pain in extremity [Unknown]
  - Ageusia [Unknown]
